FAERS Safety Report 18893345 (Version 1)
Quarter: 2021Q1

REPORT INFORMATION
  Report Type: Spontaneous
  Country: US (occurrence: US)
  Receive Date: 20210215
  Receipt Date: 20210215
  Transmission Date: 20210420
  Serious: Yes (Hospitalization)
  Sender: FDA-Public Use
  Company Number: US-SA-2021SA050312

PATIENT
  Age: 63 Year
  Sex: Female

DRUGS (6)
  1. TECFIDERA [Concomitant]
     Active Substance: DIMETHYL FUMARATE
  2. ASPIRIN 81 [Concomitant]
     Active Substance: ASPIRIN
  3. AVONEX [Suspect]
     Active Substance: INTERFERON BETA-1A
  4. AUBAGIO [Suspect]
     Active Substance: TERIFLUNOMIDE
     Indication: MULTIPLE SCLEROSIS
     Dosage: 14 MG, QD
     Route: 048
  5. AMPYRA [Concomitant]
     Active Substance: DALFAMPRIDINE
  6. CLONAZEPAM. [Concomitant]
     Active Substance: CLONAZEPAM

REACTIONS (3)
  - Gastrointestinal disorder [Unknown]
  - Dizziness [Unknown]
  - Malaise [Unknown]
